FAERS Safety Report 8537059-6 (Version None)
Quarter: 2012Q3

REPORT INFORMATION
  Report Type: 
  Country: None (occurrence: None)
  Receive Date: 20120725
  Receipt Date: 20120717
  Transmission Date: 20120928
  Serious: Yes (Death)
  Sender: FDA-Public Use
  Company Number: JP-PFIZER INC-2012175506

PATIENT
  Age: 63 Year
  Sex: Male

DRUGS (1)
  1. ADRIAMYCIN PFS [Suspect]
     Indication: LYMPHOMA
     Route: 042

REACTIONS (4)
  - MONOCYTE COUNT DECREASED [None]
  - WHITE BLOOD CELL COUNT DECREASED [None]
  - ZYGOMYCOSIS [None]
  - NEUTROPHIL COUNT DECREASED [None]
